FAERS Safety Report 5087562-9 (Version None)
Quarter: 2006Q3

REPORT INFORMATION
  Report Type: 
  Country: None (occurrence: None)
  Receive Date: 20060822
  Receipt Date: 20060822
  Transmission Date: 20061208
  Serious: Yes (Hospitalization)
  Sender: FDA-Public Use
  Company Number: None

PATIENT
  Age: 49 Year
  Sex: Male
  Weight: 113.3993 kg

DRUGS (16)
  1. NAPROXEN [Suspect]
     Indication: PAIN
     Dosage: 500 MG BID PO
     Route: 048
     Dates: start: 20060504
  2. IBUPROFEN [Suspect]
     Dosage: 600 MG PO
     Route: 048
  3. ASPIRIN [Concomitant]
  4. METOPROLOL TARTRATE [Concomitant]
  5. NITROGLYCERIN [Concomitant]
  6. OMEPRAZOLE [Concomitant]
  7. PYRIDOXINE HCL [Concomitant]
  8. SIMVASTATIN [Concomitant]
  9. FOSINOPRIL SODIUM [Concomitant]
  10. TRAZODONE HCL [Concomitant]
  11. ALBUTEROL SPIROS [Concomitant]
  12. CITALOPRAM [Concomitant]
  13. FLUNISOLIDE [Concomitant]
  14. GEMFIBROZIL [Concomitant]
  15. IPRATROPIUM BROMIDE [Concomitant]
  16. NAPROXEN [Concomitant]

REACTIONS (6)
  - COLD SWEAT [None]
  - DIZZINESS [None]
  - DUODENAL ULCER HAEMORRHAGE [None]
  - FEELING COLD [None]
  - MELAENA [None]
  - RECTAL HAEMORRHAGE [None]
